FAERS Safety Report 7356999-7 (Version None)
Quarter: 2011Q1

REPORT INFORMATION
  Report Type: 
  Country: None (occurrence: None)
  Receive Date: 20110317
  Receipt Date: 20110308
  Transmission Date: 20110831
  Serious: Yes (Hospitalization)
  Sender: FDA-Public Use
  Company Number: JP-SP-2010-06221

PATIENT
  Sex: Male
  Weight: 67.8 kg

DRUGS (4)
  1. MITOMYCIN [Concomitant]
     Route: 043
     Dates: start: 20100831
  2. CEFCAPENE PIVOXIL HYDROCHLORIDE [Concomitant]
     Indication: PAIN
     Route: 048
     Dates: start: 20100817
  3. IMMUCYST [Suspect]
     Indication: BLADDER CANCER
     Route: 043
     Dates: start: 20100817, end: 20100824
  4. LOXOPROFEN SODIUM [Concomitant]
     Indication: PAIN
     Route: 048
     Dates: start: 20100817

REACTIONS (2)
  - PYREXIA [None]
  - BOVINE TUBERCULOSIS [None]
